FAERS Safety Report 24321408 (Version 2)
Quarter: 2024Q3

REPORT INFORMATION
  Report Type: Spontaneous
  Country: DE (occurrence: DE)
  Receive Date: 20240916
  Receipt Date: 20240926
  Transmission Date: 20241017
  Serious: Yes (Other)
  Sender: NOVO NORDISK
  Company Number: DE-NOVOPROD-1281339

PATIENT
  Sex: Male

DRUGS (3)
  1. OZEMPIC [Interacting]
     Active Substance: SEMAGLUTIDE
     Indication: Weight control
     Dosage: UNK
     Dates: start: 20240106
  2. METFORMIN HYDROCHLORIDE [Concomitant]
     Active Substance: METFORMIN HYDROCHLORIDE
     Dosage: UNK
  3. CANDESARTAN [Concomitant]
     Active Substance: CANDESARTAN
     Dosage: 8 MG/12.5 MG

REACTIONS (6)
  - Erectile dysfunction [Unknown]
  - Condition aggravated [Unknown]
  - Drug interaction [Unknown]
  - Lack of concomitant drug effect [Unknown]
  - Visual impairment [Unknown]
  - Off label use [Unknown]
